FAERS Safety Report 6090378-8 (Version None)
Quarter: 2009Q1

REPORT INFORMATION
  Report Type: 
  Country: None (occurrence: None)
  Receive Date: 20090220
  Receipt Date: 20090210
  Transmission Date: 20090719
  Serious: Yes (Hospitalization)
  Sender: FDA-Public Use
  Company Number: 116834

PATIENT
  Age: 31 Year
  Sex: Female

DRUGS (3)
  1. ACETAMINOPHEN [Suspect]
     Dosage: ORAL
     Route: 048
     Dates: start: 20090119, end: 20090119
  2. GRANOCYTE / UNKNOWN [Suspect]
     Indication: BONE MARROW TRANSPLANT
     Dosage: 263 UG / QD / SUBCUTANEOUS
     Route: 058
     Dates: start: 20090118, end: 20090120
  3. GRANOCYTE / UNKNOWN [Suspect]

REACTIONS (3)
  - DIZZINESS [None]
  - FALL [None]
  - FEELING ABNORMAL [None]
